FAERS Safety Report 6723844-X (Version None)
Quarter: 2010Q2

REPORT INFORMATION
  Report Type: 
  Country: None (occurrence: None)
  Receive Date: 20100511
  Receipt Date: 20100426
  Transmission Date: 20101027
  Serious: Yes (Disabling, Other)
  Sender: FDA-Public Use
  Company Number: ACO_00764_2010

PATIENT
  Sex: Female
  Weight: 72.5755 kg

DRUGS (10)
  1. AMPYRA [Suspect]
     Indication: MULTIPLE SCLEROSIS
     Dosage: 10 MG 1X/12 HOURS ORAL
     Route: 048
     Dates: start: 20100421, end: 20100423
  2. ATENOLOL [Concomitant]
  3. MAXZIDE [Concomitant]
  4. K-DUR [Concomitant]
  5. VESICARE [Concomitant]
  6. TIZANIDINE HCL [Concomitant]
  7. BACLOFEN [Concomitant]
  8. ESTRADIOL [Concomitant]
  9. ZEGERID [Concomitant]
  10. METHYLPHENIDATE HCL [Concomitant]

REACTIONS (8)
  - ABASIA [None]
  - CHILLS [None]
  - FATIGUE [None]
  - HYPOAESTHESIA [None]
  - MULTIPLE SCLEROSIS RELAPSE [None]
  - MUSCLE SPASMS [None]
  - TREMOR [None]
  - VISION BLURRED [None]
